FAERS Safety Report 6545864-0 (Version None)
Quarter: 2010Q1

REPORT INFORMATION
  Report Type: 
  Country: None (occurrence: None)
  Receive Date: 20100121
  Receipt Date: 20090320
  Transmission Date: 20100710
  Serious: No
  Sender: FDA-Public Use
  Company Number: US-ALLERGAN-0903744US

PATIENT
  Age: 73 Year
  Sex: Male

DRUGS (1)
  1. TAZORAC [Suspect]
     Indication: RASH
     Dosage: UNK, QHS
     Route: 061

REACTIONS (2)
  - DRUG INEFFECTIVE [None]
  - SKIN HYPERPIGMENTATION [None]
